FAERS Safety Report 23030941 (Version 4)
Quarter: 2023Q4

REPORT INFORMATION
  Report Type: Spontaneous
  Country: GB (occurrence: GB)
  Receive Date: 20231005
  Receipt Date: 20231123
  Transmission Date: 20240109
  Serious: Yes (Death, Other)
  Sender: FDA-Public Use
  Company Number: GB-CELLTRION INC.-2023GB019050

PATIENT

DRUGS (1)
  1. RITUXIMAB [Suspect]
     Active Substance: RITUXIMAB
     Indication: Nephrotic syndrome
     Dosage: ADDITIONAL INFO: ROUTE:

REACTIONS (4)
  - Embolism [Fatal]
  - Nephrotic syndrome [Fatal]
  - Pneumonia [Fatal]
  - Intentional product use issue [Unknown]
